FAERS Safety Report 8188787-6 (Version None)
Quarter: 2012Q1

REPORT INFORMATION
  Report Type: 
  Country: None (occurrence: None)
  Receive Date: 20120306
  Receipt Date: 20120301
  Transmission Date: 20120608
  Serious: Yes (Hospitalization)
  Sender: FDA-Public Use
  Company Number: US-PFIZER INC-2012056668

PATIENT
  Sex: Female
  Weight: 68.027 kg

DRUGS (6)
  1. GEODON [Suspect]
     Dosage: UNK
     Dates: start: 20090101, end: 20090101
  2. BUSPAR [Concomitant]
     Indication: DEPRESSION
     Dosage: 30 MG, UNK
  3. RISPERDAL [Suspect]
     Dosage: UNK
  4. COMPAZINE [Suspect]
     Dosage: UNK
  5. SEROQUEL [Concomitant]
     Indication: INSOMNIA
     Dosage: 25 MG, UNK
  6. NEURONTIN [Concomitant]
     Indication: NEUROPATHY PERIPHERAL
     Dosage: 600 MG, UNK

REACTIONS (1)
  - HISTRIONIC PERSONALITY DISORDER [None]
